FAERS Safety Report 6786751-2 (Version None)
Quarter: 2010Q2

REPORT INFORMATION
  Report Type: 
  Country: None (occurrence: None)
  Receive Date: 20100623
  Receipt Date: 20100609
  Transmission Date: 20101027
  Serious: Yes (Hospitalization, Other)
  Sender: FDA-Public Use
  Company Number: US-ELI_LILLY_AND_COMPANY-US201006003474

PATIENT
  Sex: Female
  Weight: 54 kg

DRUGS (19)
  1. FLUOXETINE HYDROCHLORIDE [Suspect]
     Indication: DEPRESSION
     Dates: end: 20100415
  2. NULYTELY [Concomitant]
     Dates: start: 20100305
  3. ENOXAPARIN SODIUM [Concomitant]
     Dates: start: 20100304
  4. COTRIM [Concomitant]
     Dates: start: 20100311
  5. HYDROCORTISONE [Concomitant]
     Dates: start: 20100306
  6. FENTANYL [Concomitant]
     Indication: PAIN
     Route: 062
     Dates: start: 20100311, end: 20100511
  7. LORAZEPAM [Concomitant]
     Indication: DEPRESSION
     Dates: end: 20100415
  8. MORPHINE [Concomitant]
     Indication: PAIN
     Dates: start: 20100318, end: 20100415
  9. HALOPERIDOL [Concomitant]
     Indication: DEPRESSION
     Dates: start: 20100415, end: 20100422
  10. DIAZEPAM [Concomitant]
     Indication: DEPRESSION
     Dates: start: 20100411, end: 20100515
  11. TRAZODONE HYDROCHLORIDE [Concomitant]
     Dates: start: 20100311, end: 20100415
  12. ONDANSETRON [Concomitant]
     Dates: start: 20100325, end: 20100511
  13. DEXAMETHASONE ACETATE [Concomitant]
     Indication: PAIN
     Dates: start: 20100311, end: 20100511
  14. OMEPRAZOLE [Concomitant]
     Indication: GASTRITIS
  15. PARACETAMOL [Concomitant]
     Indication: PYREXIA
     Dates: start: 20100331
  16. AUGMENTIN '125' [Concomitant]
     Indication: PYREXIA
     Dates: start: 20100331, end: 20100411
  17. PAROXETINE HCL [Concomitant]
     Indication: DEPRESSION
     Dates: end: 20100415
  18. METOCLOPRAMIDE [Concomitant]
     Indication: PROPHYLAXIS OF NAUSEA AND VOMITING
     Dates: start: 20100318, end: 20100331
  19. DOMPERIDONE [Concomitant]
     Indication: PROPHYLAXIS OF NAUSEA AND VOMITING
     Dates: start: 20100318, end: 20100331

REACTIONS (7)
  - BRADYPHRENIA [None]
  - HAEMOGLOBIN DECREASED [None]
  - HAEMOSTASIS [None]
  - PYREXIA [None]
  - SOMNOLENCE [None]
  - STAPHYLOCOCCAL INFECTION [None]
  - URINARY TRACT INFECTION [None]
